FAERS Safety Report 12290900 (Version 1)
Quarter: 2016Q2

REPORT INFORMATION
  Report Type: Spontaneous
  Country: CA (occurrence: CA)
  Receive Date: 20160421
  Receipt Date: 20160421
  Transmission Date: 20160815
  Serious: Yes (Hospitalization)
  Sender: FDA-Public Use
  Company Number: CA-SA-2016SA066879

PATIENT
  Age: 69 Year
  Sex: Female

DRUGS (15)
  1. FUROSEMIDE. [Suspect]
     Active Substance: FUROSEMIDE
     Route: 065
  2. RIVAROXABAN [Concomitant]
     Active Substance: RIVAROXABAN
  3. DILTIAZEM [Concomitant]
     Active Substance: DILTIAZEM
  4. LANSOPRAZOLE. [Concomitant]
     Active Substance: LANSOPRAZOLE
  5. DIGOXIN. [Interacting]
     Active Substance: DIGOXIN
     Route: 065
  6. LEVOTHYROXINE SODIUM. [Interacting]
     Active Substance: LEVOTHYROXINE SODIUM
     Route: 065
  7. OLANZAPINE. [Concomitant]
     Active Substance: OLANZAPINE
  8. CELECOXIB. [Interacting]
     Active Substance: CELECOXIB
     Route: 065
  9. NITROGLYCERINE [Concomitant]
     Active Substance: NITROGLYCERIN
     Dosage: 0.2 MG/H TO BE WORN 10 H/D
  10. ZOPICLONE [Concomitant]
     Active Substance: ZOPICLONE
  11. ESCITALOPRAM [Concomitant]
     Active Substance: ESCITALOPRAM OXALATE
  12. AMITRIPTYLINE [Concomitant]
     Active Substance: AMITRIPTYLINE
  13. SPIRONOLACTONE. [Interacting]
     Active Substance: SPIRONOLACTONE
     Dosage: 1 TABLET IN THE MORNING AND HALF A TABLET AT LUNCH
     Route: 065
  14. QUETIAPINE. [Concomitant]
     Active Substance: QUETIAPINE
  15. NITROFURANTOIN. [Concomitant]
     Active Substance: NITROFURANTOIN

REACTIONS (9)
  - Blood pressure decreased [Recovering/Resolving]
  - Drug interaction [Unknown]
  - Depressed level of consciousness [Recovering/Resolving]
  - Heart rate decreased [Recovering/Resolving]
  - Confusional state [Recovering/Resolving]
  - Vomiting [Recovering/Resolving]
  - Blood potassium increased [Recovering/Resolving]
  - Drug level increased [Recovering/Resolving]
  - Blood creatinine increased [Recovering/Resolving]
